FAERS Safety Report 4645548-X (Version None)
Quarter: 2005Q2

REPORT INFORMATION
  Report Type: 
  Country: None (occurrence: None)
  Receive Date: 20050425
  Receipt Date: 20050413
  Transmission Date: 20051028
  Serious: Yes (Other)
  Sender: FDA-Public Use
  Company Number: 2005059067

PATIENT
  Age: 64 Year
  Sex: Female
  Weight: 79 kg

DRUGS (1)
  1. BEXTRA [Suspect]
     Indication: SCIATICA
     Dosage: 40 MG, ORAL
     Route: 048
     Dates: start: 20050329, end: 20050408

REACTIONS (1)
  - EXANTHEM [None]
